FAERS Safety Report 4932254-7 (Version None)
Quarter: 2006Q1

REPORT INFORMATION
  Report Type: 
  Country: None (occurrence: None)
  Receive Date: 20060228
  Receipt Date: 20060217
  Transmission Date: 20060701
  Serious: Yes (Life-Threatening, Disabling)
  Sender: FDA-Public Use
  Company Number: 2006025375

PATIENT
  Age: 84 Year
  Sex: Female
  Weight: 70 kg

DRUGS (3)
  1. DOXAZOSIN (DOXAZOSIN) [Suspect]
     Indication: HYPERTENSION
     Dosage: 8 MG (4 MG, BID INTERVAL: EVERY DAY), ORAL
     Route: 048
     Dates: start: 20031112, end: 20060206
  2. BISOPROLOL (BISOPROLOL) [Concomitant]
  3. IRBESARTAN [Concomitant]

REACTIONS (2)
  - EPISTAXIS [None]
  - SLEEP DISORDER [None]
